FAERS Safety Report 6314451-1 (Version None)
Quarter: 2009Q3

REPORT INFORMATION
  Report Type: 
  Country: None (occurrence: None)
  Receive Date: 20090819
  Receipt Date: 20090810
  Transmission Date: 20100115
  Serious: Yes (Hospitalization)
  Sender: FDA-Public Use
  Company Number: FR-ASTRAZENECA-2009SE07353

PATIENT
  Age: 72 Year
  Sex: Male

DRUGS (8)
  1. NEXIUM [Suspect]
     Route: 048
     Dates: start: 20090625, end: 20090703
  2. ATACAND [Suspect]
     Indication: HYPERTENSION
     Route: 048
     Dates: start: 20090625
  3. AMLOR [Suspect]
     Indication: HYPERTENSION
     Route: 048
     Dates: start: 20090625
  4. DAFALGAN [Suspect]
     Indication: PAIN
     Route: 048
     Dates: start: 20090524, end: 20090703
  5. TAHOR [Suspect]
     Indication: DYSLIPIDAEMIA
     Route: 048
     Dates: start: 20090625, end: 20090708
  6. CALCIPARINE [Concomitant]
  7. TOPALGIC [Concomitant]
  8. DROLEPTAN [Concomitant]

REACTIONS (1)
  - TOXIC SKIN ERUPTION [None]
